FAERS Safety Report 13234525 (Version 1)
Quarter: 2017Q1

REPORT INFORMATION
  Report Type: Spontaneous
  Country: US (occurrence: US)
  Receive Date: 20170215
  Receipt Date: 20170215
  Transmission Date: 20170428
  Serious: No
  Sender: FDA-Public Use
  Company Number: US-PFIZER INC-2017057065

PATIENT
  Age: 72 Year
  Sex: Female

DRUGS (2)
  1. NYSTATIN. [Interacting]
     Active Substance: NYSTATIN
  2. DIFLUCAN [Suspect]
     Active Substance: FLUCONAZOLE
     Dosage: 50 MG, DAILY, (TAKE 1 TABLET (50 MG TOTAL) BY MOUTH DAILY- FOR 7 DAYS
     Route: 048
     Dates: start: 20170111, end: 20170118

REACTIONS (1)
  - Drug interaction [Unknown]
